FAERS Safety Report 8594471-7 (Version None)
Quarter: 2012Q3

REPORT INFORMATION
  Report Type: 
  Country: None (occurrence: None)
  Receive Date: 20120815
  Receipt Date: 20120807
  Transmission Date: 20120928
  Serious: Yes (Hospitalization)
  Sender: FDA-Public Use
  Company Number: US-009507513-1207USA002474

PATIENT

DRUGS (8)
  1. ZOCOR [Concomitant]
     Dosage: 10 MG, QD
  2. PEPCID [Concomitant]
     Dosage: 20 MG, BID
  3. ANGIOMAX [Concomitant]
  4. ASPIRIN [Concomitant]
     Dosage: 325 UNK, UNK
  5. PLAVEX [Concomitant]
     Dosage: 75 UNK, UNK
  6. INTEGRILIN [Suspect]
     Indication: ACUTE CORONARY SYNDROME
     Dosage: UNK
     Dates: start: 20120606, end: 20120606
  7. LOPRESSOR [Concomitant]
     Dosage: 25 MG, BID
  8. PLAVEX [Concomitant]
     Dosage: 300 UNK, UNK

REACTIONS (1)
  - THROMBOCYTOPENIA [None]
